FAERS Safety Report 15559337 (Version 1)
Quarter: 2018Q4

REPORT INFORMATION
  Report Type: Spontaneous
  Country: US (occurrence: US)
  Receive Date: 20181029
  Receipt Date: 20181029
  Transmission Date: 20190205
  Serious: No
  Sender: FDA-Public Use
  Company Number: CN-ASTRAZENECA-2018SF40905

PATIENT
  Sex: Male

DRUGS (1)
  1. NEXIUM 24HR [Suspect]
     Active Substance: ESOMEPRAZOLE MAGNESIUM
     Dosage: UNK, DAILY
     Route: 048
     Dates: end: 20181017

REACTIONS (3)
  - Incorrect product administration duration [Unknown]
  - Product packaging issue [Unknown]
  - Product package associated injury [Unknown]
